FAERS Safety Report 5611468-7 (Version None)
Quarter: 2008Q1

REPORT INFORMATION
  Report Type: 
  Country: None (occurrence: None)
  Receive Date: 20080201
  Receipt Date: 20080125
  Transmission Date: 20080703
  Serious: Yes (Death, Hospitalization, Other)
  Sender: FDA-Public Use
  Company Number: TW-SANOFI-SYNTHELABO-A01200800847

PATIENT
  Age: 82 Year
  Sex: Female

DRUGS (5)
  1. IRINOTECAN [Suspect]
     Dosage: UNK
     Route: 042
     Dates: start: 20070731, end: 20070731
  2. FLUOROURACIL [Suspect]
     Dosage: UNK
     Route: 042
     Dates: start: 20071112, end: 20071112
  3. FOLINIC ACID [Suspect]
     Dosage: UNK
     Route: 042
     Dates: start: 20071112, end: 20071112
  4. OXALIPLATIN [Suspect]
     Indication: COLON CANCER
     Dosage: UNK
     Route: 042
     Dates: start: 20071112, end: 20071112
  5. AVASTIN [Suspect]
     Route: 042
     Dates: start: 20071112, end: 20071112

REACTIONS (7)
  - DIARRHOEA [None]
  - GASTRIC HAEMORRHAGE [None]
  - GASTRIC PERFORATION [None]
  - IMPAIRED HEALING [None]
  - MALNUTRITION [None]
  - RESPIRATORY FAILURE [None]
  - VOMITING [None]
